FAERS Safety Report 21315410 (Version 1)
Quarter: 2022Q3

REPORT INFORMATION
  Report Type: Spontaneous
  Country: US (occurrence: None)
  Receive Date: 20220909
  Receipt Date: 20220909
  Transmission Date: 20221027
  Serious: No
  Sender: FDA-Public Use
  Company Number: US-ARIS GLOBAL-202112-2227

PATIENT
  Age: 62 Year
  Sex: Female

DRUGS (32)
  1. OXERVATE [Suspect]
     Active Substance: CENEGERMIN-BKBJ
     Indication: Meibomian gland dysfunction
     Route: 047
     Dates: start: 20211203
  2. ASPIRIN [Concomitant]
     Active Substance: ASPIRIN
  3. VITAMIN C [Concomitant]
     Active Substance: ASCORBIC ACID
  4. SELENIUM [Concomitant]
     Active Substance: SELENIUM
  5. ALPHA LIPOIC ACID [Concomitant]
     Active Substance: .ALPHA.-LIPOIC ACID
  6. CALCIUM 500 [Concomitant]
     Dosage: 1250 MG
  7. FISH OIL [Concomitant]
     Active Substance: FISH OIL
     Dosage: 100-150 MG.
  8. IRON [Concomitant]
     Active Substance: IRON
     Dosage: 159(45) MG
  9. VITAMIN B COMPLEX [Concomitant]
     Active Substance: CYANOCOBALAMIN\DEXPANTHENOL\NIACINAMIDE\PYRIDOXINE HYDROCHLORIDE\RIBOFLAVIN 5^-PHOSPHATE SODIUM\THIA
  10. PSYLLIUM HUSK [Concomitant]
     Active Substance: PSYLLIUM HUSK
  11. LEVOMEFOLIC ACID [Concomitant]
     Active Substance: LEVOMEFOLIC ACID
  12. COENZYME Q10 [Concomitant]
     Active Substance: DIETARY SUPPLEMENT\UBIDECARENONE
  13. VITAMIN D3 [Concomitant]
     Active Substance: CHOLECALCIFEROL
     Dosage: 100000/ G
  14. MINERALS\VITAMINS [Concomitant]
     Active Substance: MINERALS\VITAMINS
     Dosage: 4-300-250
  15. INVELTYS [Concomitant]
     Active Substance: LOTEPREDNOL ETABONATE
  16. SYSTANE (HYPROMELLOSE 2910 (4000 MPA.S)) [Concomitant]
     Active Substance: HYPROMELLOSE 2910 (4000 MPA.S)
     Dosage: 0,3% -0,4%
  17. RESTASIS [Concomitant]
     Active Substance: CYCLOSPORINE
  18. SIMPONI ARIA [Concomitant]
     Active Substance: GOLIMUMAB
     Dosage: 50 MG/4 ML VIAL
  19. PLAQUENIL [Concomitant]
     Active Substance: HYDROXYCHLOROQUINE SULFATE
  20. KLOR-CON M15 [Concomitant]
  21. AMITRIPTYLINE [Concomitant]
     Active Substance: AMITRIPTYLINE
  22. DOXYCYCLINE HYCLATE [Concomitant]
     Active Substance: DOXYCYCLINE HYCLATE
  23. FLUDROCORTISONE ACETATE [Concomitant]
     Active Substance: FLUDROCORTISONE ACETATE
  24. LORTAB [Concomitant]
     Active Substance: ACETAMINOPHEN\HYDROCODONE BITARTRATE
     Dosage: 10-300/15
  25. ROPINIROLE [Concomitant]
     Active Substance: ROPINIROLE
     Dosage: 24 H, ER
  26. PROLIA [Concomitant]
     Active Substance: DENOSUMAB
     Dosage: 60 MG/ML SYRINGE
  27. OMEPRAZOLE\SODIUM BICARBONATE [Concomitant]
     Active Substance: OMEPRAZOLE\SODIUM BICARBONATE
  28. LEVETIRACETAM [Concomitant]
     Active Substance: LEVETIRACETAM
  29. TRAZODONE HCL [Concomitant]
     Active Substance: TRAZODONE HYDROCHLORIDE
  30. PREDNISONE [Concomitant]
     Active Substance: PREDNISONE
  31. ELIQUIS [Concomitant]
     Active Substance: APIXABAN
  32. CRESTOR [Concomitant]
     Active Substance: ROSUVASTATIN CALCIUM

REACTIONS (10)
  - Eyelid pain [Unknown]
  - Product use complaint [Unknown]
  - Visual impairment [Unknown]
  - Product use issue [Unknown]
  - Accidental overdose [Unknown]
  - Product storage error [Unknown]
  - Product dose omission issue [Unknown]
  - Periorbital swelling [Unknown]
  - Wrong technique in product usage process [Unknown]
  - Drug ineffective [Unknown]

NARRATIVE: CASE EVENT DATE: 20211208
